FAERS Safety Report 4449249-2 (Version None)
Quarter: 2004Q3

REPORT INFORMATION
  Report Type: 
  Country: None (occurrence: None)
  Receive Date: 20040910
  Receipt Date: 20040902
  Transmission Date: 20050211
  Serious: Yes (Other)
  Sender: FDA-Public Use
  Company Number: HQWYE784602SEP04

PATIENT
  Age: 76 Year
  Sex: Female

DRUGS (5)
  1. CORDARONE [Suspect]
     Indication: MYOCARDIAL ISCHAEMIA
     Dosage: 200 MG 1X PER 1 DAY  (DURATION:  ^FOR MONTHS^ )
     Route: 048
  2. SIMVASTATIN [Suspect]
     Indication: HYPERCHOLESTEROLAEMIA
     Dates: start: 20040629, end: 20040728
  3. SYNCUMAR (ACENOCOUMAROL) [Concomitant]
  4. AMLODIPINE [Concomitant]
  5. BISOPROLOL FUMARATE AND HYDROCHLOROTHIAZIDE [Concomitant]

REACTIONS (8)
  - ABDOMINAL PAIN [None]
  - BLOOD CREATINE PHOSPHOKINASE INCREASED [None]
  - BLOOD LACTATE DEHYDROGENASE ABNORMAL [None]
  - DRUG INTERACTION [None]
  - FATIGUE [None]
  - MUSCLE NECROSIS [None]
  - MYALGIA [None]
  - NAUSEA [None]
